FAERS Safety Report 23578484 (Version 1)
Quarter: 2024Q1

REPORT INFORMATION
  Report Type: Spontaneous
  Country: US (occurrence: US)
  Receive Date: 20240229
  Receipt Date: 20240229
  Transmission Date: 20240410
  Serious: Yes (Other)
  Sender: FDA-Public Use
  Company Number: US-ORGANON-O2402USA002670

PATIENT
  Age: 23 Year
  Sex: Female

DRUGS (1)
  1. NEXPLANON [Suspect]
     Active Substance: ETONOGESTREL
     Indication: Contraception
     Dosage: 1 IMPLANT. LEFT UPPER ARM, 68 MILLIGRAM
     Route: 059
     Dates: start: 20240108, end: 20240219

REACTIONS (4)
  - Device expulsion [Recovered/Resolved]
  - Implant site pain [Recovering/Resolving]
  - Staphylococcal infection [Recovering/Resolving]
  - Implant site infection [Recovering/Resolving]

NARRATIVE: CASE EVENT DATE: 20240101
